FAERS Safety Report 7062497-0 (Version None)
Quarter: 2010Q4

REPORT INFORMATION
  Report Type: 
  Country: None (occurrence: None)
  Receive Date: 20101026
  Receipt Date: 20091117
  Transmission Date: 20110411
  Serious: No
  Sender: FDA-Public Use
  Company Number: US-PFIZER INC-2009280397

PATIENT
  Sex: Male
  Weight: 86.2 kg

DRUGS (15)
  1. LIPITOR [Suspect]
     Indication: BLOOD CHOLESTEROL INCREASED
     Dosage: 40 MG, 1X/DAY
  2. FOSAMAX [Concomitant]
     Dosage: UNK
  3. POTASSIUM [Concomitant]
     Dosage: UNK
  4. SLOW-MAG [Concomitant]
  5. LASIX [Concomitant]
  6. COREG [Concomitant]
  7. DIGOXIN [Concomitant]
  8. REMERON [Concomitant]
  9. PREDNISOLONE [Concomitant]
  10. SPIRONOLACTONE [Concomitant]
  11. VITAMIN D [Concomitant]
  12. ASCORBIC ACID [Concomitant]
  13. MULTI-VITAMINS [Concomitant]
  14. FISH OIL [Concomitant]
  15. CALCIUM [Concomitant]

REACTIONS (2)
  - BACK PAIN [None]
  - MUSCULOSKELETAL PAIN [None]
